FAERS Safety Report 24904350 (Version 1)
Quarter: 2025Q1

REPORT INFORMATION
  Report Type: Spontaneous
  Country: US (occurrence: None)
  Receive Date: 20250129
  Receipt Date: 20250129
  Transmission Date: 20250409
  Serious: Yes (Hospitalization)
  Sender: FDA-CTU
  Company Number: None

PATIENT
  Age: 65 Year
  Sex: Female
  Weight: 150 kg

DRUGS (1)
  1. PACLITAXEL [Suspect]
     Active Substance: PACLITAXEL
     Indication: Endometrial adenocarcinoma
     Route: 042
     Dates: start: 20250127

REACTIONS (5)
  - Infusion related reaction [None]
  - Blood pressure decreased [None]
  - Chest discomfort [None]
  - Altered state of consciousness [None]
  - Therapy cessation [None]

NARRATIVE: CASE EVENT DATE: 20250127
